FAERS Safety Report 8462255-6 (Version None)
Quarter: 2012Q2

REPORT INFORMATION
  Report Type: 
  Country: None (occurrence: None)
  Receive Date: 20120625
  Receipt Date: 20120621
  Transmission Date: 20120825
  Serious: Yes (Death, Hospitalization)
  Sender: FDA-Public Use
  Company Number: ES-SANOFI-AVENTIS-2012SA035346

PATIENT
  Age: 71 Year
  Sex: Male
  Weight: 85 kg

DRUGS (8)
  1. TAZOBACTAM [Interacting]
     Indication: URINARY TRACT INFECTION
     Dosage: DOSAGE FORM: 200
     Route: 042
     Dates: start: 20120105, end: 20120112
  2. ASPIRIN [Interacting]
     Indication: PROPHYLAXIS
     Dosage: 100 MG COMPRIMIDOS, DOSAGE FORM: 9
     Route: 048
     Dates: start: 20120105, end: 20120113
  3. ATENOLOL [Concomitant]
     Indication: CARDIAC FAILURE CONGESTIVE
     Route: 048
     Dates: start: 20110301, end: 20120113
  4. PANTOPRAZOLE [Concomitant]
     Indication: PROPHYLAXIS
     Route: 048
     Dates: start: 20120105, end: 20120115
  5. INSPRA [Concomitant]
     Route: 048
     Dates: start: 20110301
  6. SINTROM [Concomitant]
     Indication: PROPHYLAXIS
     Route: 048
     Dates: start: 20120105, end: 20120106
  7. SINTROM [Concomitant]
     Route: 048
     Dates: start: 20111001, end: 20120102
  8. ENOXAPARIN SODIUM [Suspect]
     Indication: PROPHYLAXIS
     Route: 058
     Dates: start: 20120106, end: 20120114

REACTIONS (3)
  - HYPOVOLAEMIC SHOCK [None]
  - DRUG INTERACTION [None]
  - RETROPERITONEAL HAEMATOMA [None]
